FAERS Safety Report 14838254 (Version 1)
Quarter: 2018Q2

REPORT INFORMATION
  Report Type: Spontaneous
  Country: US (occurrence: US)
  Receive Date: 20180417
  Receipt Date: 20180417
  Transmission Date: 20180711
  Serious: Yes (Death)
  Sender: FDA-Public Use
  Company Number: None

PATIENT
  Age: 66 Year
  Sex: Male

DRUGS (3)
  1. TEMOZOLOMIDE. [Suspect]
     Active Substance: TEMOZOLOMIDE
     Indication: BRAIN NEOPLASM MALIGNANT
     Route: 048
     Dates: start: 20180330, end: 20180415
  2. TENOZOLOMIDE [Suspect]
     Active Substance: TEMOZOLOMIDE
     Indication: BRAIN NEOPLASM MALIGNANT
     Route: 048
     Dates: start: 20180330, end: 20180415
  3. ONDANSETRON 8MG [Concomitant]
     Active Substance: ONDANSETRON
     Dates: start: 20180330, end: 20180415

REACTIONS (1)
  - Death [None]

NARRATIVE: CASE EVENT DATE: 20180415
